FAERS Safety Report 14914073 (Version 1)
Quarter: 2018Q2

REPORT INFORMATION
  Report Type: Spontaneous
  Country: DE (occurrence: DE)
  Receive Date: 20180518
  Receipt Date: 20180518
  Transmission Date: 20180711
  Serious: Yes (Hospitalization)
  Sender: FDA-Public Use
  Company Number: DE-BAYER-2018-090709

PATIENT
  Age: 66 Year
  Sex: Male

DRUGS (6)
  1. IVABRADINE [Concomitant]
     Active Substance: IVABRADINE
     Dosage: 5 MG, BID
     Route: 065
  2. ATORVASTATIN [Concomitant]
     Active Substance: ATORVASTATIN
     Dosage: 40 MG, HS
     Route: 065
  3. METOPROLOL. [Concomitant]
     Active Substance: METOPROLOL
     Dosage: 23.75 MG, BID
     Route: 065
  4. PRASUGREL. [Suspect]
     Active Substance: PRASUGREL
     Dosage: 10 MG, OM
     Route: 065
  5. TORASEMID [Concomitant]
     Active Substance: TORSEMIDE
     Dosage: 10 MG, OM
     Route: 065
  6. ASPIRIN 100 MG [Suspect]
     Active Substance: ASPIRIN
     Dosage: 100 MG, QD
     Route: 065

REACTIONS (4)
  - Drug prescribing error [Unknown]
  - Haematochezia [Unknown]
  - Labelled drug-drug interaction medication error [Unknown]
  - Diarrhoea [Unknown]
